FAERS Safety Report 17301529 (Version 6)
Quarter: 2020Q2

REPORT INFORMATION
  Report Type: Spontaneous
  Country: US (occurrence: US)
  Receive Date: 20200122
  Receipt Date: 20200402
  Transmission Date: 20200713
  Serious: Yes (Other)
  Sender: FDA-Public Use
  Company Number: US-PFIZER INC-2020014249

PATIENT
  Age: 68 Year
  Sex: Male
  Weight: 93.44 kg

DRUGS (10)
  1. DILANTIN [Suspect]
     Active Substance: PHENYTOIN
     Dosage: 100 MG, 2 TABLETS TWICE A DAY
  2. ATORVASTATIN [Concomitant]
     Active Substance: ATORVASTATIN
     Indication: BLOOD CHOLESTEROL ABNORMAL
     Dosage: 40 MG, 1X/DAY (ONE TABLET ONCE A DAY)
     Dates: start: 201812
  3. OMEGA 3 [FISH OIL] [Concomitant]
     Active Substance: FISH OIL
     Indication: BLOOD TRIGLYCERIDES INCREASED
     Dosage: 2 G, 2X/DAY [2 IN THE MORNING AND 2 AT NIGHT]
     Dates: start: 201812
  4. CARVEDILOL. [Concomitant]
     Active Substance: CARVEDILOL
     Indication: BLOOD PRESSURE ABNORMAL
     Dosage: 6.25 MG, 2X/DAY (ONE TAB TWICE A DAY)
     Dates: start: 201812
  5. FUROSEMIDE. [Concomitant]
     Active Substance: FUROSEMIDE
     Indication: BLOOD PRESSURE ABNORMAL
     Dosage: 20 MG, 1X/DAY
  6. LOSARTAN. [Concomitant]
     Active Substance: LOSARTAN
     Indication: BLOOD PRESSURE ABNORMAL
     Dosage: 100 MG, 2X/DAY (2 TABLETS TWICE A DAY)
  7. BABY ASPIRIN [Concomitant]
     Active Substance: ASPIRIN
     Indication: CARDIAC DISORDER
     Dosage: 81 MG, 1X/DAY
     Dates: start: 201812
  8. DILANTIN [Suspect]
     Active Substance: PHENYTOIN
     Indication: SEIZURE
     Dosage: 50 MG, 1X/DAY ( AT BEDTIME)
     Dates: end: 2019
  9. DILANTIN [Suspect]
     Active Substance: PHENYTOIN
     Indication: SEIZURE
     Dosage: 200 MG, TWO IN THE MORNING AND TWO IN THE EVENING
     Route: 048
     Dates: start: 1955
  10. PHENOBARBITAL. [Concomitant]
     Active Substance: PHENOBARBITAL
     Indication: SEIZURE
     Dosage: 32.4 MG, 2X/DAY (1 TAB TWICE A DAY)

REACTIONS (4)
  - Product prescribing issue [Unknown]
  - Coronary artery occlusion [Unknown]
  - Weight decreased [Recovered/Resolved]
  - Anticonvulsant drug level increased [Not Recovered/Not Resolved]

NARRATIVE: CASE EVENT DATE: 201812
